FAERS Safety Report 20804747 (Version 1)
Quarter: 2022Q2

REPORT INFORMATION
  Report Type: Spontaneous
  Country: US (occurrence: US)
  Receive Date: 20220509
  Receipt Date: 20220509
  Transmission Date: 20220721
  Serious: Yes (Other)
  Sender: FDA-Public Use
  Company Number: US-PFIZER INC-202200639268

PATIENT
  Age: 87 Year
  Sex: Female
  Weight: 68.04 kg

DRUGS (1)
  1. TIKOSYN [Suspect]
     Active Substance: DOFETILIDE
     Indication: Atrial fibrillation
     Dosage: 125 UG, 2X/DAY
     Dates: end: 20220422

REACTIONS (1)
  - Cardiac ablation [Unknown]

NARRATIVE: CASE EVENT DATE: 20220422
